FAERS Safety Report 11742580 (Version 2)
Quarter: 2016Q4

REPORT INFORMATION
  Report Type: Spontaneous
  Country: US (occurrence: US)
  Receive Date: 20151116
  Receipt Date: 20161019
  Transmission Date: 20170206
  Serious: No
  Sender: FDA-Public Use
  Company Number: US-ACTELION PHARMACEUTICALS US, INC.-A-NJ2015-121571

PATIENT
  Age: 53 Year
  Sex: Female

DRUGS (2)
  1. FLOLAN [Concomitant]
     Active Substance: EPOPROSTENOL SODIUM
     Route: 051
  2. TRACLEER [Suspect]
     Active Substance: BOSENTAN
     Indication: PULMONARY ARTERIAL HYPERTENSION
     Dosage: 125 MG, BID
     Route: 048
     Dates: start: 20130426

REACTIONS (2)
  - Device related infection [Unknown]
  - Catheter site pruritus [Unknown]
